FAERS Safety Report 8301851-3 (Version None)
Quarter: 2012Q1

REPORT INFORMATION
  Report Type: 
  Country: None (occurrence: None)
  Receive Date: 20120326
  Receipt Date: 20110215
  Transmission Date: 20120608
  Serious: Yes (Other)
  Sender: FDA-Public Use
  Company Number: PHHY2010US84046

PATIENT
  Age: 63 Year
  Sex: Female

DRUGS (4)
  1. TASIGNA [Suspect]
     Indication: CHROMOSOME ANALYSIS ABNORMAL
     Dosage: 300 MG, BID, ORAL ; 150 MG, BID ; 300 MG, BID, ORAL
     Route: 048
     Dates: start: 20101118
  2. TASIGNA [Suspect]
     Indication: CHRONIC MYELOID LEUKAEMIA
     Dosage: 300 MG, BID, ORAL ; 150 MG, BID ; 300 MG, BID, ORAL
     Route: 048
     Dates: start: 20101118
  3. TASIGNA [Suspect]
     Indication: CHROMOSOME ANALYSIS ABNORMAL
     Dosage: 300 MG, BID, ORAL ; 150 MG, BID ; 300 MG, BID, ORAL
     Route: 048
     Dates: start: 20101202, end: 20101208
  4. TASIGNA [Suspect]
     Indication: CHRONIC MYELOID LEUKAEMIA
     Dosage: 300 MG, BID, ORAL ; 150 MG, BID ; 300 MG, BID, ORAL
     Route: 048
     Dates: start: 20101202, end: 20101208

REACTIONS (2)
  - BLOOD BILIRUBIN INCREASED [None]
  - HEPATIC ENZYME INCREASED [None]
